FAERS Safety Report 14212670 (Version 1)
Quarter: 2017Q4

REPORT INFORMATION
  Report Type: Spontaneous
  Country: US (occurrence: US)
  Receive Date: 20171122
  Receipt Date: 20171122
  Transmission Date: 20180321
  Serious: Yes (Other)
  Sender: FDA-Public Use
  Company Number: US-CELGENEUS-USA-20171106527

PATIENT

DRUGS (2)
  1. TOSEDOSTAT [Suspect]
     Active Substance: TOSEDOSTAT
     Indication: MYELODYSPLASTIC SYNDROME
     Dosage: 120 MILLIGRAM
     Route: 048
  2. AZACITIDINE INJECTABLE [Suspect]
     Active Substance: AZACITIDINE
     Indication: MYELODYSPLASTIC SYNDROME
     Dosage: 75 MILLIGRAM/SQ. METER
     Route: 065

REACTIONS (9)
  - Disease recurrence [Unknown]
  - Syncope [Unknown]
  - Disease progression [Unknown]
  - Gamma-glutamyltransferase increased [Unknown]
  - Sepsis [Unknown]
  - Dyspnoea [Unknown]
  - Febrile neutropenia [Unknown]
  - Hypokalaemia [Unknown]
  - Rash [Unknown]
